FAERS Safety Report 8418141-0 (Version None)
Quarter: 2012Q2

REPORT INFORMATION
  Report Type: 
  Country: None (occurrence: None)
  Receive Date: 20120604
  Receipt Date: 20120604
  Transmission Date: 20120825
  Serious: Yes (Life-Threatening)
  Sender: FDA-Public Use
  Company Number: None

PATIENT
  Age: 58 Year
  Sex: Male
  Weight: 77.1115 kg

DRUGS (1)
  1. RISPERDAL [Suspect]

REACTIONS (4)
  - DISTURBANCE IN ATTENTION [None]
  - CONCUSSION [None]
  - ROAD TRAFFIC ACCIDENT [None]
  - JAW DISORDER [None]
